FAERS Safety Report 24571283 (Version 1)
Quarter: 2024Q4

REPORT INFORMATION
  Report Type: Spontaneous
  Country: US (occurrence: US)
  Receive Date: 20241101
  Receipt Date: 20241101
  Transmission Date: 20250114
  Serious: Yes (Other)
  Sender: UROGEN PHARMA
  Company Number: US-UROGEN PHARMA LTD.-2024-UGN-000161

PATIENT

DRUGS (1)
  1. JELMYTO [Suspect]
     Active Substance: MITOMYCIN
     Indication: Product used for unknown indication
     Dosage: UNK (INSTILLATION)
     Route: 065
     Dates: start: 20240216, end: 20240216

REACTIONS (2)
  - Ureteritis [Unknown]
  - Ureteric stenosis [Unknown]

NARRATIVE: CASE EVENT DATE: 20240101
